FAERS Safety Report 4558060-3 (Version None)
Quarter: 2005Q1

REPORT INFORMATION
  Report Type: 
  Country: None (occurrence: None)
  Receive Date: 20050121
  Receipt Date: 20040727
  Transmission Date: 20050727
  Serious: No
  Sender: FDA-Public Use
  Company Number: US-BRISTOL-MYERS SQUIBB COMPANY-12653739

PATIENT
  Sex: Female

DRUGS (2)
  1. SERZONE [Suspect]
     Indication: DEPRESSION
     Dosage: WAS PRESCRIBED 17 YEARS AGO. ^ALTERED DOSE.^
     Route: 048
  2. SERZONE [Suspect]
     Indication: PAIN MANAGEMENT
     Dosage: WAS PRESCRIBED 17 YEARS AGO. ^ALTERED DOSE.^
     Route: 048

REACTIONS (1)
  - DRUG INEFFECTIVE [None]
